FAERS Safety Report 9795552 (Version 1)
Quarter: 2014Q1

REPORT INFORMATION
  Report Type: Spontaneous
  Country: US (occurrence: US)
  Receive Date: 20140103
  Receipt Date: 20140103
  Transmission Date: 20141002
  Serious: Yes (Hospitalization)
  Sender: FDA-Public Use
  Company Number: US-BAYER-2014-000722

PATIENT
  Age: 21 Year
  Sex: Female

DRUGS (5)
  1. YAZ [Suspect]
  2. YASMIN [Suspect]
  3. OCELLA [Suspect]
  4. MELOXICAM [Concomitant]
     Indication: CONTRACEPTION
     Dosage: 15 MG, UNK
  5. PERCOCET [Concomitant]
     Indication: PAIN

REACTIONS (1)
  - Pulmonary embolism [None]
